FAERS Safety Report 8114629-0 (Version None)
Quarter: 2012Q1

REPORT INFORMATION
  Report Type: 
  Country: None (occurrence: None)
  Receive Date: 20120206
  Receipt Date: 20120202
  Transmission Date: 20120608
  Serious: Yes (Other)
  Sender: FDA-Public Use
  Company Number: AU-PFIZER INC-2012029368

PATIENT
  Age: 33 Year
  Sex: Male

DRUGS (1)
  1. VARENICLINE TARTRATE [Suspect]
     Indication: SMOKING CESSATION THERAPY
     Dosage: UNK
     Dates: start: 20120103, end: 20120113

REACTIONS (5)
  - INTENTIONAL SELF-INJURY [None]
  - PARANOIA [None]
  - INSOMNIA [None]
  - AMNESIA [None]
  - AGITATION [None]
